FAERS Safety Report 8949869 (Version 2)
Quarter: 2012Q4

REPORT INFORMATION
  Report Type: Report from Study
  Country: JP (occurrence: JP)
  Receive Date: 20121206
  Receipt Date: 20121227
  Transmission Date: 20130627
  Serious: Yes (Hospitalization)
  Sender: FDA-Public Use
  Company Number: JP-PFIZER INC-2012296586

PATIENT
  Age: 75 Year
  Sex: Male
  Weight: 54.2 kg

DRUGS (26)
  1. IRINOTECAN HCL [Suspect]
     Indication: COLORECTAL CANCER METASTATIC
     Dosage: 297 mg, UNK
     Route: 042
     Dates: start: 20121016, end: 20121016
  2. FLUOROURACIL [Suspect]
     Indication: COLORECTAL CANCER METASTATIC
     Dosage: 660 mg, UNK
     Route: 040
     Dates: start: 20121016, end: 20121016
  3. FLUOROURACIL [Suspect]
     Dosage: 3960 mg/m2, UNK
     Route: 041
     Dates: start: 20121018, end: 20121018
  4. FOLINIC ACID [Suspect]
     Indication: COLORECTAL CANCER METASTATIC
     Dosage: 660 mg, UNK
     Route: 042
     Dates: start: 20121016, end: 20121016
  5. BLINDED THERAPY [Suspect]
     Indication: COLORECTAL CANCER METASTATIC
     Dosage: Daily
     Route: 042
     Dates: start: 20121016, end: 20121016
  6. CHLOR-TRIMETON [Concomitant]
     Dosage: UNK
     Dates: start: 20121016, end: 20121016
  7. DEXART [Concomitant]
     Dosage: UNK
     Dates: start: 20121016, end: 20121016
  8. ALOXI [Concomitant]
     Dosage: UNK
     Dates: start: 20121016, end: 20121016
  9. OLMETEC [Concomitant]
     Dosage: UNK
     Dates: start: 20110620, end: 20121029
  10. AMLODIN [Concomitant]
     Dosage: UNK
     Dates: start: 20110623, end: 20121029
  11. LANIRAPID [Concomitant]
     Dosage: UNK
     Dates: start: 20091118, end: 20121029
  12. WARFARIN [Concomitant]
     Dosage: UNK
     Dates: start: 20091118, end: 20121029
  13. LOXOPROFEN [Concomitant]
     Dosage: UNK
     Dates: start: 20120405, end: 20121029
  14. HARNAL [Concomitant]
     Dosage: UNK
     Dates: start: 20110706, end: 20121029
  15. OXYCONTIN [Concomitant]
     Dosage: UNK
     Dates: start: 20120906, end: 20121030
  16. OXINORM [Concomitant]
     Dosage: UNK
     Dates: start: 20120726
  17. TAKEPRON [Concomitant]
     Dosage: UNK
     Dates: start: 20120405, end: 20121029
  18. MAGMITT [Concomitant]
     Dosage: UNK
     Dates: start: 20121011, end: 20121029
  19. PANTOSIN [Concomitant]
     Dosage: UNK
     Dates: start: 20121012, end: 20121029
  20. PURSENNID [Concomitant]
     Dosage: UNK
     Dates: start: 20121016, end: 20121018
  21. PRIMPERAN [Concomitant]
     Dosage: UNK
     Dates: start: 20121017, end: 20121021
  22. SERENACE [Concomitant]
     Dosage: UNK
     Dates: start: 20121031
  23. AKINETON FOR INJECTION [Concomitant]
     Dosage: UNK
     Dates: start: 20121031
  24. SILECE [Concomitant]
     Dosage: UNK
     Dates: start: 20121108, end: 20121108
  25. DUROTEP [Concomitant]
     Dosage: Patch
     Dates: start: 20121030
  26. BFLUID [Concomitant]
     Dosage: UNK
     Dates: start: 20121017, end: 20121102

REACTIONS (3)
  - Skin ulcer [Recovering/Resolving]
  - Diarrhoea [Recovered/Resolved]
  - Decreased appetite [Recovered/Resolved]
